FAERS Safety Report 24287625 (Version 3)
Quarter: 2024Q4

REPORT INFORMATION
  Report Type: Spontaneous
  Country: JP (occurrence: JP)
  Receive Date: 20240905
  Receipt Date: 20241210
  Transmission Date: 20250115
  Serious: Yes (Life-Threatening, Hospitalization)
  Sender: CSL BEHRING
  Company Number: JP-BEH-2024177966

PATIENT
  Age: 7 Decade
  Sex: Male

DRUGS (7)
  1. PRIVIGEN [Suspect]
     Active Substance: HUMAN IMMUNOGLOBULIN G
     Indication: Hypogammaglobulinaemia
     Dosage: 100 ML, SINGLE
     Route: 041
     Dates: start: 20240819, end: 20240819
  2. ACYCLOVIR [Concomitant]
     Active Substance: ACYCLOVIR
     Dosage: UNK, QD (EVENING)
     Route: 048
  3. SULFAMETHOXAZOLE\TRIMETHOPRIM [Concomitant]
     Active Substance: SULFAMETHOXAZOLE\TRIMETHOPRIM
     Dosage: UNK, QD (EVENING)
     Route: 048
  4. LANSOPRAZOLE [Concomitant]
     Active Substance: LANSOPRAZOLE
     Dosage: UNK, QD (EVENING)
     Route: 048
  5. ALFACALCIDOL [Concomitant]
     Active Substance: ALFACALCIDOL
     Dosage: UNK, QD (EVENING)
     Route: 048
  6. ALENDRONATE [Concomitant]
     Active Substance: ALENDRONATE SODIUM
     Dosage: UNK, QW (MORNING)
     Route: 048
  7. MAGNESIUM OXIDE [Concomitant]
     Active Substance: MAGNESIUM OXIDE
     Dosage: 2 DF, BID (MORNING, EVENING)
     Route: 048

REACTIONS (6)
  - Anaphylactic shock [Recovered/Resolved]
  - Chills [Recovered/Resolved]
  - Chills [Recovered/Resolved]
  - Oxygen saturation decreased [Recovered/Resolved]
  - Wheezing [Recovered/Resolved]
  - Blood pressure increased [Unknown]

NARRATIVE: CASE EVENT DATE: 20240801
